FAERS Safety Report 24253246 (Version 1)
Quarter: 2024Q3

REPORT INFORMATION
  Report Type: Spontaneous
  Country: US (occurrence: US)
  Receive Date: 20240827
  Receipt Date: 20240827
  Transmission Date: 20241016
  Serious: No
  Sender: NOBELPHARMA
  Company Number: US-Nobelpharma America, LLC-NPA-2024-01422

PATIENT
  Sex: Male

DRUGS (2)
  1. HYFTOR [Suspect]
     Active Substance: SIROLIMUS
     Indication: Angiofibroma
     Route: 003
     Dates: start: 20240201
  2. KEPPRA [Concomitant]
     Active Substance: LEVETIRACETAM
     Dosage: 500/5ML

REACTIONS (2)
  - Dry skin [Unknown]
  - Off label use [None]
